FAERS Safety Report 7005393-7 (Version None)
Quarter: 2010Q3

REPORT INFORMATION
  Report Type: 
  Country: None (occurrence: None)
  Receive Date: 20100920
  Receipt Date: 20100920
  Transmission Date: 20110219
  Serious: Yes (Death, Hospitalization)
  Sender: FDA-Public Use
  Company Number: None

PATIENT
  Age: 85 Year
  Sex: Male
  Weight: 121 kg

DRUGS (23)
  1. LIPITOR [Suspect]
     Indication: BLOOD CHOLESTEROL INCREASED
     Dosage: 80 MG DAILY PO
     Route: 048
  2. PROPOXYPHENE HCL [Concomitant]
  3. ACETAMINOPHIN -DARVOCET-N-100 [Concomitant]
  4. ASPIRIN -ADULT ASA- [Concomitant]
  5. COREG [Concomitant]
  6. ENALAPRIL MALEATE-ENALAPRIL- [Concomitant]
  7. FINASTERIDE [Concomitant]
  8. LASIX [Concomitant]
  9. LIPITOR [Concomitant]
  10. PSYLLIUM -METAMUCIL- [Concomitant]
  11. CALCIUM CARBONATE-VITAMIN D -OYST SHELL/D- [Concomitant]
  12. PLAVIX [Concomitant]
  13. POTASSIUM CHLORIDE -POT CL MICRO- [Concomitant]
  14. PRAMIPEXOLE DIHYDROCHLORIDE -PRAMIPEXOLE- [Concomitant]
  15. RANEXA [Concomitant]
  16. TAMSULOSIN HCL [Concomitant]
  17. KEFLEX [Concomitant]
  18. GUAIFENESIN -MUCINEX- [Concomitant]
  19. NITROGLYCERIN -NITROSTAT- [Concomitant]
  20. PROMETHAZINE-DM -PHENERGAN DM- [Concomitant]
  21. PROPOXYPHENE-N W/ACETAMINOPHEN -DARVOCET-N-100 [Concomitant]
  22. ALBUTEROL HFA MDI  ***-VENTOLIN HFA MDI *** [Concomitant]
  23. ZOLPIDEM TARTRATE [Concomitant]

REACTIONS (5)
  - DEHYDRATION [None]
  - HYPOTENSION [None]
  - RENAL FAILURE CHRONIC [None]
  - RHABDOMYOLYSIS [None]
  - SEPSIS [None]
